FAERS Safety Report 16925595 (Version 1)
Quarter: 2019Q4

REPORT INFORMATION
  Report Type: Spontaneous
  Country: GB (occurrence: GB)
  Receive Date: 20191016
  Receipt Date: 20191016
  Transmission Date: 20200122
  Serious: Yes (Other)
  Sender: FDA-Public Use
  Company Number: GB-MYLANLABS-2019M1097126

PATIENT
  Age: 69 Year
  Sex: Female
  Weight: 54.42 kg

DRUGS (5)
  1. ESTRADERM [Concomitant]
     Active Substance: ESTRADIOL
  2. CETIRIZINE [Suspect]
     Active Substance: CETIRIZINE HYDROCHLORIDE
     Indication: SEASONAL ALLERGY
     Dosage: 10 MILLIGRAM, QD
     Route: 048
     Dates: start: 20170510, end: 20170916
  3. TOSTRAN [Concomitant]
     Active Substance: TESTOSTERONE
  4. FULTIUM D3 [Concomitant]
     Active Substance: CHOLECALCIFEROL
  5. PREGABALIN. [Concomitant]
     Active Substance: PREGABALIN

REACTIONS (3)
  - Headache [Recovered/Resolved]
  - Vertigo [Recovered/Resolved]
  - Sinus pain [Recovered/Resolved]

NARRATIVE: CASE EVENT DATE: 20170530
